FAERS Safety Report 24970741 (Version 3)
Quarter: 2025Q2

REPORT INFORMATION
  Report Type: Spontaneous
  Country: JP (occurrence: JP)
  Receive Date: 20250214
  Receipt Date: 20250428
  Transmission Date: 20250717
  Serious: Yes (Death, Hospitalization, Other)
  Sender: ELI LILLY AND COMPANY
  Company Number: JP-ELI_LILLY_AND_COMPANY-JP202502009152

PATIENT
  Age: 59 Year
  Sex: Male
  Weight: 63.2 kg

DRUGS (7)
  1. NECITUMUMAB [Suspect]
     Active Substance: NECITUMUMAB
     Indication: Lung squamous cell carcinoma stage IV
     Route: 041
     Dates: start: 20241009, end: 20241225
  2. GEMCITABINE [Suspect]
     Active Substance: GEMCITABINE
     Indication: Lung squamous cell carcinoma stage IV
     Route: 041
     Dates: start: 20241009
  3. CISPLATIN [Suspect]
     Active Substance: CISPLATIN
     Indication: Lung squamous cell carcinoma stage IV
     Route: 041
     Dates: start: 20241009
  4. PEMBROLIZUMAB [Suspect]
     Active Substance: PEMBROLIZUMAB
     Indication: Squamous cell carcinoma of lung
     Route: 065
     Dates: start: 20240712, end: 20240823
  5. DECADRON [Concomitant]
     Active Substance: DEXAMETHASONE
     Indication: Squamous cell carcinoma of lung
     Route: 048
     Dates: start: 20241009, end: 20241218
  6. OLANZAPINE [Concomitant]
     Active Substance: OLANZAPINE
     Indication: Squamous cell carcinoma of lung
     Route: 048
     Dates: start: 20241009, end: 20241218
  7. DOXYCYCLINE HYDROCHLORIDE [Concomitant]
     Active Substance: DOXYCYCLINE HYDROCHLORIDE
     Indication: Squamous cell carcinoma of lung
     Route: 048
     Dates: start: 20241009, end: 20250109

REACTIONS (2)
  - Interstitial lung disease [Fatal]
  - Malignant neoplasm progression [Unknown]

NARRATIVE: CASE EVENT DATE: 20250108
